FAERS Safety Report 13241096 (Version 1)
Quarter: 2017Q1

REPORT INFORMATION
  Report Type: Spontaneous
  Country: AT (occurrence: AT)
  Receive Date: 20170216
  Receipt Date: 20170216
  Transmission Date: 20170428
  Serious: Yes (Death)
  Sender: FDA-Public Use
  Company Number: AT-JNJFOC-20170212669

PATIENT

DRUGS (6)
  1. BROMPERIDOL [Suspect]
     Active Substance: BROMPERIDOL
     Indication: AFFECTIVE DISORDER
     Route: 065
  2. RISPERIDONE. [Suspect]
     Active Substance: RISPERIDONE
     Indication: AFFECTIVE DISORDER
     Dosage: DOSE- 8 MG/ DAY OR 2 MG/ DAY
     Route: 065
  3. PIPAMPERONE [Suspect]
     Active Substance: PIPAMPERONE
     Indication: SCHIZOPHRENIA
     Dosage: DOSE- 350 MG/ DAY OR 60 MG/ DAY (IN COMBINATION WITH RISPERIDONE)??MEAN DOSE-40 MG/ DAY (SINGLE USE)
     Route: 065
  4. RISPERIDONE. [Suspect]
     Active Substance: RISPERIDONE
     Indication: SCHIZOPHRENIA
     Dosage: DOSE- 8 MG/ DAY OR 2 MG/ DAY
     Route: 065
  5. PIPAMPERONE [Suspect]
     Active Substance: PIPAMPERONE
     Indication: AFFECTIVE DISORDER
     Dosage: DOSE- 350 MG/ DAY OR 60 MG/ DAY (IN COMBINATION WITH RISPERIDONE)??MEAN DOSE-40 MG/ DAY (SINGLE USE)
     Route: 065
  6. BROMPERIDOL [Suspect]
     Active Substance: BROMPERIDOL
     Indication: SCHIZOPHRENIA
     Route: 065

REACTIONS (1)
  - Embolism venous [Fatal]
